FAERS Safety Report 24741673 (Version 1)
Quarter: 2024Q4

REPORT INFORMATION
  Report Type: Spontaneous
  Country: US (occurrence: US)
  Receive Date: 20241217
  Receipt Date: 20241217
  Transmission Date: 20250114
  Serious: Yes (Other)
  Sender: AUROBINDO
  Company Number: US-AUROBINDO-AUR-APL-2024-060516

PATIENT
  Age: 51 Year
  Sex: Male

DRUGS (15)
  1. MONTELUKAST [Suspect]
     Active Substance: MONTELUKAST SODIUM
     Indication: Asthma
     Dosage: UNK
     Route: 065
  2. MONTELUKAST [Suspect]
     Active Substance: MONTELUKAST SODIUM
     Indication: Chronic eosinophilic rhinosinusitis
  3. ALBUTEROL [Suspect]
     Active Substance: ALBUTEROL
     Indication: Asthma
     Dosage: UNK UNK, AS NECESSARY
     Route: 065
  4. ALBUTEROL [Suspect]
     Active Substance: ALBUTEROL
     Indication: Chronic eosinophilic rhinosinusitis
  5. LORATADINE [Suspect]
     Active Substance: LORATADINE
     Indication: Asthma
     Dosage: UNK
     Route: 065
  6. LORATADINE [Suspect]
     Active Substance: LORATADINE
     Indication: Chronic eosinophilic rhinosinusitis
  7. OMALIZUMAB [Suspect]
     Active Substance: OMALIZUMAB
     Indication: Asthma
     Dosage: UNK UNK, AS NECESSARY
     Route: 065
  8. OMALIZUMAB [Suspect]
     Active Substance: OMALIZUMAB
     Indication: Chronic eosinophilic rhinosinusitis
  9. BUDESONIDE\FORMOTEROL [Suspect]
     Active Substance: BUDESONIDE\FORMOTEROL
     Indication: Asthma
     Dosage: UNK
     Route: 065
  10. BUDESONIDE\FORMOTEROL [Suspect]
     Active Substance: BUDESONIDE\FORMOTEROL
     Indication: Chronic eosinophilic rhinosinusitis
  11. ELEXACAFTOR [Concomitant]
     Active Substance: ELEXACAFTOR
     Indication: Cystic fibrosis
     Dosage: UNK UNK, AS NECESSARY
     Route: 065
  12. TEZACAFTOR [Concomitant]
     Active Substance: TEZACAFTOR
     Indication: Cystic fibrosis
     Dosage: UNK UNK, AS NECESSARY
     Route: 065
  13. IVACAFTOR [Concomitant]
     Active Substance: IVACAFTOR
     Indication: Cystic fibrosis
     Dosage: UNK UNK, AS NECESSARY
     Route: 065
  14. DORNASE ALFA [Concomitant]
     Active Substance: DORNASE ALFA
     Indication: Cystic fibrosis
     Dosage: UNK UNK, AS NECESSARY
     Route: 065
  15. DUPIXENT [Concomitant]
     Active Substance: DUPILUMAB
     Indication: Product used for unknown indication
     Dosage: UNK
     Route: 065

REACTIONS (1)
  - Drug ineffective [Unknown]
